FAERS Safety Report 15130846 (Version 3)
Quarter: 2018Q3

REPORT INFORMATION
  Report Type: Report from Study
  Country: US (occurrence: US)
  Receive Date: 20180711
  Receipt Date: 20180910
  Transmission Date: 20181010
  Serious: Yes (Hospitalization)
  Sender: FDA-Public Use
  Company Number: US-ACTELION-A-US2018-175073

PATIENT
  Age: 49 Year
  Sex: Female

DRUGS (17)
  1. DIZEPAM [Concomitant]
  2. INSULIN LISPRO [Concomitant]
     Active Substance: INSULIN LISPRO
  3. PREDNISONE. [Concomitant]
     Active Substance: PREDNISONE
  4. CYCLOBENZAPRINE. [Concomitant]
     Active Substance: CYCLOBENZAPRINE
  5. SILDENAFIL. [Concomitant]
     Active Substance: SILDENAFIL
  6. DIGOX [Concomitant]
     Active Substance: DIGOXIN
  7. ESCITALOPRAM [Concomitant]
     Active Substance: ESCITALOPRAM OXALATE
  8. BASAGLAR [Concomitant]
     Active Substance: INSULIN GLARGINE
  9. VENTOLIN HFA [Concomitant]
     Active Substance: ALBUTEROL SULFATE
  10. TRAMADOL. [Concomitant]
     Active Substance: TRAMADOL
  11. GABAPENTIN. [Concomitant]
     Active Substance: GABAPENTIN
  12. DIGOXIN. [Concomitant]
     Active Substance: DIGOXIN
  13. OPSUMIT [Suspect]
     Active Substance: MACITENTAN
     Indication: PULMONARY ARTERIAL HYPERTENSION
     Dosage: 10 MG, QD
     Route: 048
     Dates: start: 20180608
  14. LEVETIRACETAM. [Concomitant]
     Active Substance: LEVETIRACETAM
  15. HUMALOG [Concomitant]
     Active Substance: INSULIN LISPRO
  16. LISINOPRIL. [Concomitant]
     Active Substance: LISINOPRIL
  17. IBUPROFEN. [Concomitant]
     Active Substance: IBUPROFEN

REACTIONS (8)
  - Pulmonary oedema [Not Recovered/Not Resolved]
  - Nausea [Unknown]
  - Drug dose omission [Recovered/Resolved]
  - Pollakiuria [Not Recovered/Not Resolved]
  - Fall [Not Recovered/Not Resolved]
  - Dizziness [Unknown]
  - Back pain [Not Recovered/Not Resolved]
  - Headache [Not Recovered/Not Resolved]

NARRATIVE: CASE EVENT DATE: 201807
